FAERS Safety Report 19969611 (Version 1)
Quarter: 2021Q4

REPORT INFORMATION
  Report Type: Spontaneous
  Country: DE (occurrence: DE)
  Receive Date: 20211019
  Receipt Date: 20211019
  Transmission Date: 20220303
  Serious: Yes (Other)
  Sender: FDA-Public Use
  Company Number: DE-VIIV HEALTHCARE LIMITED-DE2021GSK138167

PATIENT
  Age: 50 Year
  Sex: Male

DRUGS (3)
  1. NEVIRAPINE [Suspect]
     Active Substance: NEVIRAPINE
     Indication: HIV infection
     Dosage: UNK
  2. LAMIVUDINE [Suspect]
     Active Substance: LAMIVUDINE
     Indication: HIV infection
     Dosage: UNK
  3. ABACAVIR [Suspect]
     Active Substance: ABACAVIR
     Indication: HIV infection
     Dosage: UNK

REACTIONS (5)
  - Subchondral insufficiency fracture [Unknown]
  - Tibia fracture [Unknown]
  - Fracture malunion [Unknown]
  - Bone metabolism disorder [Unknown]
  - Loss of anatomical alignment after fracture reduction [Unknown]
